FAERS Safety Report 7559920-1 (Version None)
Quarter: 2011Q2

REPORT INFORMATION
  Report Type: 
  Country: None (occurrence: None)
  Receive Date: 20110621
  Receipt Date: 20110607
  Transmission Date: 20111010
  Serious: Yes (Hospitalization)
  Sender: FDA-Public Use
  Company Number: PHHY2011US50615

PATIENT
  Sex: Female

DRUGS (9)
  1. ASPIRIN [Suspect]
     Dosage: 10 MG, UNK
  2. UNIDENTIFIED THYROID MEDICATION [Suspect]
     Dosage: UNK
  3. AMLODIPINE [Suspect]
  4. CRESTOR [Suspect]
     Dosage: 10 MG, UNK
  5. DIOVAN [Suspect]
     Dosage: 320 MG, UNK
  6. METHIMAZOLE [Suspect]
  7. EXFORGE [Suspect]
  8. UNIDENTIFIED BLOOD PRESSURE MEDICATION [Suspect]
  9. ATENOLOL [Suspect]

REACTIONS (2)
  - THYROID DISORDER [None]
  - CHEST DISCOMFORT [None]
